FAERS Safety Report 5990205-0 (Version None)
Quarter: 2008Q4

REPORT INFORMATION
  Report Type: 
  Country: None (occurrence: None)
  Receive Date: 20081211
  Receipt Date: 20081209
  Transmission Date: 20090506
  Serious: Yes (Death, Other)
  Sender: FDA-Public Use
  Company Number: US-ASTRAZENECA-2008UW27306

PATIENT
  Age: 976 Month
  Sex: Male

DRUGS (1)
  1. CASODEX [Suspect]
     Route: 048

REACTIONS (5)
  - DEATH [None]
  - FALL [None]
  - MUSCLE ATROPHY [None]
  - PROSTATIC SPECIFIC ANTIGEN INCREASED [None]
  - UPPER LIMB FRACTURE [None]
